FAERS Safety Report 10491602 (Version 1)
Quarter: 2014Q4

REPORT INFORMATION
  Report Type: Spontaneous
  Country: US (occurrence: US)
  Receive Date: 20141002
  Receipt Date: 20141002
  Transmission Date: 20150528
  Serious: No
  Sender: FDA-Public Use
  Company Number: US-GLAXOSMITHKLINE-A1056048A

PATIENT
  Sex: Female

DRUGS (2)
  1. ADVAIR HFA [Suspect]
     Active Substance: FLUTICASONE PROPIONATE\SALMETEROL XINAFOATE
     Indication: DYSPNOEA
     Route: 055
  2. ADVAIR HFA [Suspect]
     Active Substance: FLUTICASONE PROPIONATE\SALMETEROL XINAFOATE
     Indication: DYSPNOEA
     Route: 055

REACTIONS (7)
  - Sensation of foreign body [Not Recovered/Not Resolved]
  - Vocal cord disorder [Not Recovered/Not Resolved]
  - Dysphagia [Not Recovered/Not Resolved]
  - Vocal cord paralysis [Not Recovered/Not Resolved]
  - Dysphonia [Not Recovered/Not Resolved]
  - Drug administration error [Unknown]
  - Aphonia [Not Recovered/Not Resolved]

NARRATIVE: CASE EVENT DATE: 201311
